FAERS Safety Report 16682270 (Version 1)
Quarter: 2019Q3

REPORT INFORMATION
  Report Type: Spontaneous
  Country: FR (occurrence: FR)
  Receive Date: 20190808
  Receipt Date: 20190808
  Transmission Date: 20191004
  Serious: Yes (Hospitalization)
  Sender: FDA-Public Use
  Company Number: FR-PFIZER INC-2019333886

PATIENT
  Age: 63 Year
  Sex: Male
  Weight: 64.6 kg

DRUGS (2)
  1. TAZOCILLINE [Suspect]
     Active Substance: PIPERACILLIN SODIUM\TAZOBACTAM SODIUM
     Indication: PERITONITIS
     Dosage: 3 DF, ONCE A DAY
     Route: 041
     Dates: start: 20190621, end: 20190626
  2. FRAGMINE [Concomitant]
     Active Substance: DALTEPARIN SODIUM
     Dosage: 1 DF, 1X/DAY
     Route: 058
     Dates: start: 20190622

REACTIONS (3)
  - Off label use [Unknown]
  - Hallucination [Recovered/Resolved]
  - Agitation [Recovered/Resolved]

NARRATIVE: CASE EVENT DATE: 20190621
